FAERS Safety Report 15798942 (Version 1)
Quarter: 2019Q1

REPORT INFORMATION
  Report Type: Spontaneous
  Country: US (occurrence: US)
  Receive Date: 20190108
  Receipt Date: 20190108
  Transmission Date: 20190417
  Serious: Yes (Death, Other)
  Sender: FDA-Public Use
  Company Number: US-MYLANLABS-2019M1000965

PATIENT
  Age: 15 Year
  Sex: Male

DRUGS (2)
  1. SULFASALAZINE. [Suspect]
     Active Substance: SULFASALAZINE
     Indication: COLITIS ULCERATIVE
     Dosage: 1 GRAM, TID
  2. AMITRIPTYLINE/PERPHENAZINE [Suspect]
     Active Substance: AMITRIPTYLINE\PERPHENAZINE
     Indication: DEPRESSION
     Dosage: UNK

REACTIONS (14)
  - Chills [Unknown]
  - Decreased appetite [Unknown]
  - Meningitis pneumococcal [Unknown]
  - Mental status changes [Unknown]
  - Hypersensitivity [Unknown]
  - Rectal haemorrhage [Fatal]
  - Hepatic necrosis [Fatal]
  - Myalgia [Unknown]
  - Gastritis [Unknown]
  - Hepatic failure [Fatal]
  - Serum sickness-like reaction [Unknown]
  - Exfoliative rash [Unknown]
  - Hepatotoxicity [Fatal]
  - Jaundice [Unknown]
